FAERS Safety Report 6396805-0 (Version None)
Quarter: 2009Q4

REPORT INFORMATION
  Report Type: 
  Country: None (occurrence: None)
  Receive Date: 20091012
  Receipt Date: 20090814
  Transmission Date: 20100525
  Serious: No
  Sender: FDA-Public Use
  Company Number: US-ASTRAZENECA-2009SE08284

PATIENT
  Age: 20 Year
  Sex: Female

DRUGS (2)
  1. SYMBICORT [Suspect]
     Indication: ASTHMA
     Dosage: TOTAL DAILY DOSE 640
     Route: 055
     Dates: start: 20090801, end: 20090801
  2. SINGULAIR [Concomitant]

REACTIONS (2)
  - SWOLLEN TONGUE [None]
  - URTICARIA [None]
